FAERS Safety Report 10841328 (Version 1)
Quarter: 2015Q1

REPORT INFORMATION
  Report Type: Spontaneous
  Country: JP (occurrence: None)
  Receive Date: 20150218
  Receipt Date: 20150218
  Transmission Date: 20150721
  Serious: Yes (Hospitalization)
  Sender: FDA-Public Use
  Company Number: 2015BCR00029

PATIENT
  Age: 43 Year
  Sex: Male

DRUGS (1)
  1. RAPIACTA [Suspect]
     Active Substance: PERAMIVIR
     Indication: INFLUENZA
     Route: 042
     Dates: start: 20150128, end: 20150128

REACTIONS (5)
  - Shock [None]
  - Cardio-respiratory arrest [None]
  - Brain oedema [None]
  - Ventricular fibrillation [None]
  - Loss of consciousness [None]

NARRATIVE: CASE EVENT DATE: 20150128
